FAERS Safety Report 4455921-0 (Version None)
Quarter: 2004Q3

REPORT INFORMATION
  Report Type: 
  Country: None (occurrence: None)
  Receive Date: 20040920
  Receipt Date: 20040908
  Transmission Date: 20050211
  Serious: Yes (Death, Hospitalization)
  Sender: FDA-Public Use
  Company Number: 163-20785-04030583

PATIENT
  Age: 68 Year
  Sex: Female

DRUGS (6)
  1. THALOMID [Suspect]
     Indication: LUNG NEOPLASM MALIGNANT
     Dosage: 100 REDUCED TO 50 MG, GD, ORAL
     Route: 048
     Dates: start: 20031223, end: 20040216
  2. THALOMID [Suspect]
     Indication: NON-SMALL CELL LUNG CANCER
     Dosage: 100 REDUCED TO 50 MG, GD, ORAL
     Route: 048
     Dates: start: 20031223, end: 20040216
  3. TAXOTERE [Suspect]
     Indication: LUNG NEOPLASM MALIGNANT
     Dosage: 130 MG, EVERY 3 WEEKS, INTRAVENOUS
     Route: 042
     Dates: end: 20040209
  4. TAXOTERE [Suspect]
     Indication: NON-SMALL CELL LUNG CANCER
     Dosage: 130 MG, EVERY 3 WEEKS, INTRAVENOUS
     Route: 042
     Dates: end: 20040209
  5. COUMADIN [Concomitant]
  6. COLACE (DOCUSATE SODIUM) [Concomitant]

REACTIONS (23)
  - ACTIVATED PARTIAL THROMBOPLASTIN TIME PROLONGED [None]
  - ALOPECIA [None]
  - ANAEMIA [None]
  - ASTHENIA [None]
  - CONCUSSION [None]
  - CONSTIPATION [None]
  - CONTUSION [None]
  - DIFFICULTY IN WALKING [None]
  - DIZZINESS [None]
  - DYSPNOEA [None]
  - ECCHYMOSIS [None]
  - FALL [None]
  - FATIGUE [None]
  - HEAD INJURY [None]
  - MALIGNANT NEOPLASM PROGRESSION [None]
  - METASTASES TO BONE [None]
  - NEUROLOGICAL EXAMINATION ABNORMAL [None]
  - NEUROPATHY [None]
  - NON-SMALL CELL LUNG CANCER [None]
  - PROTHROMBIN TIME PROLONGED [None]
  - SPINAL CORD DISORDER [None]
  - SPONDYLOSIS [None]
  - WHITE BLOOD CELL COUNT DECREASED [None]
